FAERS Safety Report 12931510 (Version 2)
Quarter: 2016Q4

REPORT INFORMATION
  Report Type: Spontaneous
  Country: US (occurrence: US)
  Receive Date: 20161110
  Receipt Date: 20161201
  Transmission Date: 20170207
  Serious: Yes (Other)
  Sender: FDA-Public Use
  Company Number: US-ALLERGAN-1665725US

PATIENT
  Age: 53 Year
  Sex: Female

DRUGS (41)
  1. HYDROCODONE BITARTRATE AND ACETAMINOPHEN [Concomitant]
     Active Substance: ACETAMINOPHEN\HYDROCODONE BITARTRATE
     Indication: PAIN
     Dosage: 1-2 TABLETS, Q6HR
  2. ELIDEL [Concomitant]
     Active Substance: PIMECROLIMUS
     Indication: SKIN EXFOLIATION
     Dosage: 1-2 A DAY
     Route: 065
  3. NEXIUM [Concomitant]
     Active Substance: ESOMEPRAZOLE MAGNESIUM
     Indication: ULCER
  4. VIBEL [Concomitant]
     Indication: OSTEOARTHRITIS
  5. LUMIGAN [Suspect]
     Active Substance: BIMATOPROST
     Indication: INTRAOCULAR PRESSURE INCREASED
     Dosage: 2 GTT, QHS
     Route: 047
  6. ALBUTEROL SULFATE. [Concomitant]
     Active Substance: ALBUTEROL SULFATE
     Indication: ASTHMA
     Dosage: 90 ?G, PRN
     Route: 055
  7. DOXYCYCLINE HYCLATE. [Concomitant]
     Active Substance: DOXYCYCLINE HYCLATE
     Indication: ECZEMA
  8. TUMS [Concomitant]
     Active Substance: CALCIUM CARBONATE
     Indication: GASTROOESOPHAGEAL REFLUX DISEASE
     Dosage: 1-4 PILLS, PRN
     Route: 048
  9. TUMS [Concomitant]
     Active Substance: CALCIUM CARBONATE
     Indication: NUTRITIONAL SUPPLEMENTATION
  10. LAC HYDRIN [Concomitant]
     Indication: DRY SKIN
     Dosage: UNK UNK, BID
     Route: 061
  11. HYDROCORTISONE. [Concomitant]
     Active Substance: HYDROCORTISONE
     Indication: DECUBITUS ULCER
     Dosage: 1-2 TIMES QD
     Route: 065
  12. FLUOCINOLONE ACETONIDE. [Concomitant]
     Active Substance: FLUOCINOLONE ACETONIDE
     Indication: RASH
     Dosage: 1-2 TIMES A DAY
     Route: 065
  13. SEREVENT DISKUS [Concomitant]
     Active Substance: SALMETEROL XINAFOATE
     Indication: ASTHMA
     Dosage: UNK UNK, BID
     Route: 055
  14. SINGULAIR [Concomitant]
     Active Substance: MONTELUKAST SODIUM
     Indication: ASTHMA
     Dosage: 10 MG, QHS
     Route: 065
  15. ROBITUSSIN DM [Concomitant]
     Active Substance: DEXTROMETHORPHAN HYDROBROMIDE\GUAIFENESIN
     Indication: ASTHMA
     Dosage: 2 TEASPOONS, Q4HR
     Route: 048
  16. DERMA SMOOTH FS [Concomitant]
     Indication: SKIN EXFOLIATION
     Dosage: 1-2 TIMES A WEEK
     Route: 061
  17. TRAZODONE HYDROCHLORIDE. [Concomitant]
     Active Substance: TRAZODONE HYDROCHLORIDE
     Indication: OSTEOARTHRITIS
     Dosage: 150 MG, QHS
     Route: 065
  18. NEXIUM [Concomitant]
     Active Substance: ESOMEPRAZOLE MAGNESIUM
     Indication: GASTROOESOPHAGEAL REFLUX DISEASE
     Dosage: 40 MG, QAM
     Route: 048
  19. CLOBEX [Concomitant]
     Active Substance: CLOBETASOL PROPIONATE
     Indication: ECZEMA
     Dosage: UNK
  20. VIBEL [Concomitant]
     Indication: CEREBRAL PALSY
     Dosage: UNK
  21. NABUMETONE. [Concomitant]
     Active Substance: NABUMETONE
     Indication: PRODUCT USED FOR UNKNOWN INDICATION
     Dosage: 750 MG, BID
     Route: 065
  22. SELENIUM SULFIDE. [Concomitant]
     Active Substance: SELENIUM SULFIDE
     Indication: ECZEMA
     Dosage: UNK
  23. ALBUTEROL. [Concomitant]
     Active Substance: ALBUTEROL
     Indication: ASTHMA
     Dosage: 2 DF, BID
     Route: 055
  24. VIACTIV CALCIUM PLUS VITAMIN D + K [Concomitant]
     Indication: NUTRITIONAL SUPPLEMENTATION
     Dosage: 1 DF, BID
     Route: 048
  25. DERMA SMOOTH FS [Concomitant]
     Indication: DANDRUFF
  26. CHLORHEXIDINE [Concomitant]
     Active Substance: CHLORHEXIDINE
     Indication: GINGIVITIS
     Dosage: UNK
  27. LUMIGAN [Suspect]
     Active Substance: BIMATOPROST
     Indication: OPEN ANGLE GLAUCOMA
  28. FLAXSEED [Concomitant]
     Active Substance: FLAX SEED
     Indication: BLOOD CHOLESTEROL
     Dosage: 2 DF, QD
     Route: 065
  29. TUMS [Concomitant]
     Active Substance: CALCIUM CARBONATE
     Indication: ULCER
  30. CLOBEXPRO [Concomitant]
     Indication: SKIN EXFOLIATION
     Dosage: 1-2 TIMES, PER WEEK
  31. CLOBEXPRO [Concomitant]
     Indication: DANDRUFF
  32. PULMICORD [Concomitant]
     Indication: ASTHMA
     Dosage: UNK, BID
     Route: 055
  33. PATANOL [Concomitant]
     Active Substance: OLOPATADINE HYDROCHLORIDE
     Indication: EYE ALLERGY
     Dosage: 1-2 DROPS, 1-4 TIMES A DAY
     Route: 047
  34. IRON [Concomitant]
     Active Substance: IRON
     Indication: PRODUCT USED FOR UNKNOWN INDICATION
     Dosage: 1325 MG, QD
     Route: 048
  35. DITROPAN [Concomitant]
     Active Substance: OXYBUTYNIN CHLORIDE
     Indication: AUTOMATIC BLADDER
     Dosage: UNK
  36. ZOMETA [Concomitant]
     Active Substance: ZOLEDRONIC ACID
     Indication: OSTEOPOROSIS
     Dosage: UNK
  37. BACLOFEN. [Concomitant]
     Active Substance: BACLOFEN
     Indication: MUSCLE SPASMS
     Dosage: 1-4 PILLS, QD
  38. DOXYCYCLINE HYCLATE. [Concomitant]
     Active Substance: DOXYCYCLINE HYCLATE
     Indication: DERMATITIS ATOPIC
     Dosage: 100 MG, 1-2 TIMES A DAY
  39. OSTEO-BI-FLEX ADV [Concomitant]
     Indication: ARTHRALGIA
     Dosage: 2 DF, QD
     Route: 065
  40. CLOBETASOL PROPIONATE E [Concomitant]
     Indication: PRURITUS
     Dosage: 7 TIMES A WEEK
     Route: 065
  41. CETIRIZINE HCL [Concomitant]
     Active Substance: CETIRIZINE HYDROCHLORIDE
     Indication: SEASONAL ALLERGY
     Dosage: 10 MG, QD
     Route: 048

REACTIONS (1)
  - Breast cancer [Unknown]

NARRATIVE: CASE EVENT DATE: 2015
